FAERS Safety Report 5702483-3 (Version None)
Quarter: 2008Q2

REPORT INFORMATION
  Report Type: 
  Country: None (occurrence: None)
  Receive Date: 20080411
  Receipt Date: 20080403
  Transmission Date: 20081010
  Serious: Yes (Hospitalization)
  Sender: FDA-Public Use
  Company Number: US-WYE-H02704108

PATIENT
  Sex: Female

DRUGS (3)
  1. PREMPRO [Suspect]
  2. PROGESTERONE [Suspect]
  3. PREMARIN [Suspect]

REACTIONS (2)
  - CORONARY ARTERY DISEASE [None]
  - ENDOMETRIAL HYPERPLASIA [None]
